FAERS Safety Report 25452480 (Version 1)
Quarter: 2025Q2

REPORT INFORMATION
  Report Type: Spontaneous
  Country: US (occurrence: US)
  Receive Date: 20250618
  Receipt Date: 20250618
  Transmission Date: 20250716
  Serious: No
  Sender: AMGEN
  Company Number: US-AMGEN-USASP2025114875

PATIENT
  Sex: Female

DRUGS (1)
  1. REPATHA [Suspect]
     Active Substance: EVOLOCUMAB
     Indication: Product used for unknown indication
     Dosage: 140 MILLIGRAM, Q2WK
     Route: 058
     Dates: start: 20250608

REACTIONS (4)
  - Nasal congestion [Unknown]
  - Nausea [Unknown]
  - Vomiting [Unknown]
  - Nasal discharge discolouration [Unknown]

NARRATIVE: CASE EVENT DATE: 20250610
